FAERS Safety Report 18327516 (Version 2)
Quarter: 2020Q4

REPORT INFORMATION
  Report Type: Report from Study
  Country: GB (occurrence: GB)
  Receive Date: 20200929
  Receipt Date: 20201130
  Transmission Date: 20210113
  Serious: Yes (Other)
  Sender: FDA-Public Use
  Company Number: GB-JNJFOC-20200925141

PATIENT
  Age: 62 Year
  Sex: Male

DRUGS (4)
  1. PREDNISOLONE. [Suspect]
     Active Substance: PREDNISOLONE
     Indication: PROSTATE CANCER
     Route: 048
     Dates: start: 20200513
  2. OMEPRAZOLE. [Concomitant]
     Active Substance: OMEPRAZOLE
     Route: 048
  3. NASONEX [Concomitant]
     Active Substance: MOMETASONE FUROATE
     Indication: RHINITIS
  4. ZYTIGA [Suspect]
     Active Substance: ABIRATERONE ACETATE
     Indication: PROSTATE CANCER
     Route: 048
     Dates: start: 20200513

REACTIONS (12)
  - Rash erythematous [Not Recovered/Not Resolved]
  - Alanine aminotransferase increased [Not Recovered/Not Resolved]
  - Blood potassium decreased [Unknown]
  - Confusional state [Unknown]
  - Hot flush [Unknown]
  - Heart rate irregular [Unknown]
  - Headache [Unknown]
  - Chromaturia [Unknown]
  - Fatigue [Unknown]
  - Yellow skin [Unknown]
  - Muscular weakness [Unknown]
  - Dizziness [Unknown]

NARRATIVE: CASE EVENT DATE: 20200910
